FAERS Safety Report 5792160-5 (Version None)
Quarter: 2008Q2

REPORT INFORMATION
  Report Type: 
  Country: None (occurrence: None)
  Receive Date: 20080626
  Receipt Date: 20080624
  Transmission Date: 20081010
  Serious: Yes (Other)
  Sender: FDA-Public Use
  Company Number: DE-BOEHRINGER INGELHEIM GMBH, GERMANY-2008-DE-03521DE

PATIENT
  Age: 57 Year
  Sex: Male
  Weight: 85 kg

DRUGS (5)
  1. ALNA OCAS [Suspect]
     Indication: BENIGN PROSTATIC HYPERPLASIA
     Dosage: IN THE MORNING
     Route: 048
  2. COMPLETE COPD THERAPY [Concomitant]
     Indication: CHRONIC OBSTRUCTIVE PULMONARY DISEASE
  3. SPIRIVA [Concomitant]
     Indication: CHRONIC OBSTRUCTIVE PULMONARY DISEASE
     Route: 055
  4. VIANI FORTE [Concomitant]
     Indication: CHRONIC OBSTRUCTIVE PULMONARY DISEASE
  5. O? THERAPY [Concomitant]
     Indication: CHRONIC OBSTRUCTIVE PULMONARY DISEASE

REACTIONS (5)
  - DYSPNOEA [None]
  - NASAL CONGESTION [None]
  - OEDEMA MOUTH [None]
  - PHARYNGEAL OEDEMA [None]
  - RHINORRHOEA [None]
